FAERS Safety Report 7361538-0 (Version None)
Quarter: 2011Q1

REPORT INFORMATION
  Report Type: 
  Country: None (occurrence: None)
  Receive Date: 20110318
  Receipt Date: 20110314
  Transmission Date: 20110831
  Serious: Yes (Death, Hospitalization)
  Sender: FDA-Public Use
  Company Number: PHHY2010US87645

PATIENT
  Sex: Female

DRUGS (12)
  1. PREVACID [Concomitant]
  2. LASIX [Concomitant]
  3. ARANESP [Concomitant]
  4. SYNTHROID [Concomitant]
  5. EXJADE [Suspect]
     Indication: MYELODYSPLASTIC SYNDROME
     Route: 048
  6. VIDAZA [Suspect]
  7. NEUPOGEN [Concomitant]
  8. MIRALAX [Concomitant]
  9. ATENOLOL [Concomitant]
  10. MEGACE [Concomitant]
  11. DURAGESIC-50 [Concomitant]
  12. LEXAPRO [Concomitant]

REACTIONS (12)
  - ANAEMIA [None]
  - DEATH [None]
  - HAEMOGLOBIN DECREASED [None]
  - MENTAL STATUS CHANGES [None]
  - DYSPNOEA [None]
  - RED CELL DISTRIBUTION WIDTH INCREASED [None]
  - HYPOPHAGIA [None]
  - RED BLOOD CELL COUNT DECREASED [None]
  - PLATELET COUNT DECREASED [None]
  - WHITE BLOOD CELL COUNT DECREASED [None]
  - HAEMATOCRIT DECREASED [None]
  - CONFUSIONAL STATE [None]
